FAERS Safety Report 5294945-0 (Version None)
Quarter: 2007Q2

REPORT INFORMATION
  Report Type: 
  Country: None (occurrence: None)
  Receive Date: 20070412
  Receipt Date: 20060522
  Transmission Date: 20071010
  Serious: Yes (Other)
  Sender: FDA-Public Use
  Company Number: 200612764EU

PATIENT
  Age: 79 Year
  Sex: Male

DRUGS (1)
  1. NICORETTE [Suspect]
     Indication: SMOKING CESSATION THERAPY
     Dosage: 2MG SINGLE DOSE
     Route: 002
     Dates: start: 20060506, end: 20060506

REACTIONS (3)
  - DELIRIUM [None]
  - DIARRHOEA [None]
  - DYSPNOEA [None]
